FAERS Safety Report 10048097 (Version 1)
Quarter: 2014Q1

REPORT INFORMATION
  Report Type: Spontaneous
  Country: US (occurrence: None)
  Receive Date: 20140306
  Receipt Date: 20140306
  Transmission Date: 20141002
  Serious: Yes (Other)
  Sender: FDA-Public Use
  Company Number: 163-21880-13054192

PATIENT
  Age: 60 Year
  Sex: Male
  Weight: 83.92 kg

DRUGS (2)
  1. REVLIMID (LENALIDOMIDE) (25 MILLIGRAM, CAPSULES) [Suspect]
     Indication: PLASMA CELL MYELOMA
     Dosage: 14IN 28 D
     Route: 048
     Dates: start: 20130401
  2. DEXAMETHSONE (MEXAMETHASONE) [Concomitant]

REACTIONS (4)
  - Gastrointestinal haemorrhage [None]
  - Dysgeusia [None]
  - Vomiting [None]
  - Constipation [None]
